FAERS Safety Report 16791199 (Version 2)
Quarter: 2019Q3

REPORT INFORMATION
  Report Type: Spontaneous
  Country: IE (occurrence: IE)
  Receive Date: 20190910
  Receipt Date: 20190925
  Transmission Date: 20191005
  Serious: No
  Sender: FDA-Public Use
  Company Number: IE-BEH-2019106793

PATIENT
  Age: 58 Year
  Sex: Female

DRUGS (3)
  1. SET, I.V. FLUID TRANSFER/ NEEDLE, HYPODERMIC, SINGLE LUMEN [Suspect]
     Active Substance: .ALPHA.1-PROTEINASE INHIBITOR HUMAN
     Dosage: DOUBLE DOSE
     Route: 065
     Dates: start: 20161220, end: 20161220
  2. SET, I.V. FLUID TRANSFER/ NEEDLE, HYPODERMIC, SINGLE LUMEN [Suspect]
     Active Substance: .ALPHA.1-PROTEINASE INHIBITOR HUMAN
     Dosage: DOUBLE DOSE
     Route: 065
     Dates: start: 20170607, end: 20170607
  3. SET, I.V. FLUID TRANSFER/ NEEDLE, HYPODERMIC, SINGLE LUMEN [Suspect]
     Active Substance: .ALPHA.1-PROTEINASE INHIBITOR HUMAN
     Dosage: DOUBLE DOSE
     Route: 065
     Dates: start: 20171221, end: 20171221

REACTIONS (2)
  - Intentional overdose [Unknown]
  - No adverse event [Unknown]
